FAERS Safety Report 11984368 (Version 1)
Quarter: 2016Q1

REPORT INFORMATION
  Report Type: Spontaneous
  Country: US (occurrence: US)
  Receive Date: 20160201
  Receipt Date: 20160201
  Transmission Date: 20160526
  Serious: No
  Sender: FDA-Public Use
  Company Number: US-KADMON PHARMACEUTICALS, LLC-KAD201507-002242

PATIENT
  Age: 34 Year
  Sex: Male
  Weight: 108.86 kg

DRUGS (3)
  1. RIBASPHERE RIBAPAK [Suspect]
     Active Substance: RIBAVIRIN
     Indication: HEPATITIS C
     Dates: start: 2015
  2. RIBASPHERE RIBAPAK [Suspect]
     Active Substance: RIBAVIRIN
  3. SOVALDI [Suspect]
     Active Substance: SOFOSBUVIR
     Indication: HEPATITIS C
     Dosage: TABLET
     Route: 048
     Dates: start: 2015

REACTIONS (5)
  - Pain [Recovering/Resolving]
  - Back pain [Recovering/Resolving]
  - Discomfort [Recovering/Resolving]
  - Eczema [Not Recovered/Not Resolved]
  - Influenza like illness [Recovering/Resolving]
